FAERS Safety Report 5736630-4 (Version None)
Quarter: 2008Q2

REPORT INFORMATION
  Report Type: 
  Country: None (occurrence: None)
  Receive Date: 20080513
  Receipt Date: 20080505
  Transmission Date: 20081010
  Serious: Yes (Other)
  Sender: FDA-Public Use
  Company Number: HQWYE891913JUL06

PATIENT
  Sex: Female

DRUGS (1)
  1. PREMPRO [Suspect]
     Dosage: .625 MG
     Route: 048
     Dates: start: 19980401, end: 20041101

REACTIONS (1)
  - BREAST CANCER METASTATIC [None]
